FAERS Safety Report 8379088-1 (Version None)
Quarter: 2012Q2

REPORT INFORMATION
  Report Type: 
  Country: None (occurrence: None)
  Receive Date: 20120522
  Receipt Date: 20120522
  Transmission Date: 20120825
  Serious: Yes (Hospitalization)
  Sender: FDA-Public Use
  Company Number: None

PATIENT
  Age: 75 Year
  Sex: Male
  Weight: 79.9 kg

DRUGS (4)
  1. LOSARTAN POTASSIUM [Suspect]
     Indication: HYPERTENSION
     Dosage: 100 MG EVERY DAY PO
     Route: 048
     Dates: start: 20090831, end: 20120326
  2. LOSARTAN POTASSIUM [Suspect]
     Indication: RENAL FAILURE CHRONIC
     Dosage: 100 MG EVERY DAY PO
     Route: 048
     Dates: start: 20090831, end: 20120326
  3. FOSINOPRIL SODIUM [Suspect]
     Indication: HYPERTENSION
     Dosage: 20 MG BID PO
     Route: 048
     Dates: end: 20120326
  4. FOSINOPRIL SODIUM [Suspect]
     Indication: RENAL FAILURE CHRONIC
     Dosage: 20 MG BID PO
     Route: 048
     Dates: end: 20120326

REACTIONS (2)
  - DYSPHAGIA [None]
  - ANGIOEDEMA [None]
